FAERS Safety Report 23460675 (Version 1)
Quarter: 2024Q1

REPORT INFORMATION
  Report Type: Spontaneous
  Country: US (occurrence: None)
  Receive Date: 20240130
  Receipt Date: 20240130
  Transmission Date: 20240410
  Serious: Yes (Disabling)
  Sender: FDA-Public Use
  Company Number: None

PATIENT
  Age: 46 Year
  Sex: Female
  Weight: 88.65 kg

DRUGS (1)
  1. OCREVUS [Suspect]
     Active Substance: OCRELIZUMAB
     Indication: Multiple sclerosis
     Dates: start: 20180815, end: 20230112

REACTIONS (5)
  - Diarrhoea [None]
  - Gastritis [None]
  - Oesophagitis [None]
  - Irritable bowel syndrome [None]
  - Product communication issue [None]
